FAERS Safety Report 14415456 (Version 2)
Quarter: 2018Q1

REPORT INFORMATION
  Report Type: Report from Study
  Country: GB (occurrence: GB)
  Receive Date: 20180121
  Receipt Date: 20180312
  Transmission Date: 20180509
  Serious: Yes (Death)
  Sender: FDA-Public Use
  Company Number: PHHY2018GB008765

PATIENT
  Sex: Male

DRUGS (1)
  1. ENTRESTO [Suspect]
     Active Substance: SACUBITRIL\VALSARTAN
     Indication: CARDIAC FAILURE
     Dosage: 200 MG (97MG OF SACUBITRIL AND 103MG OF VALSARTAN), UNK
     Route: 065
     Dates: start: 20170418

REACTIONS (3)
  - Myocardial ischaemia [Fatal]
  - Ventricular tachycardia [Fatal]
  - Cardiac failure congestive [Fatal]
